FAERS Safety Report 9404343 (Version 1)
Quarter: 2013Q3

REPORT INFORMATION
  Report Type: Spontaneous
  Country: US (occurrence: None)
  Receive Date: 20130716
  Receipt Date: 20130716
  Transmission Date: 20140515
  Serious: Yes (Hospitalization)
  Sender: FDA-Public Use
  Company Number: None

PATIENT
  Age: 5 Year
  Sex: Male
  Weight: 21 kg

DRUGS (4)
  1. METHOTREXATE [Suspect]
  2. PEG-L-ASPARAGINASE (PEGASPARGASE, ONCOSPAR) [Suspect]
  3. VINCRISTINE SULFATE [Suspect]
  4. DEXAMETHASONE [Suspect]

REACTIONS (12)
  - Hypoxic-ischaemic encephalopathy [None]
  - Cerebral infarction [None]
  - Respiratory distress [None]
  - Generalised erythema [None]
  - Cyanosis [None]
  - Lip swelling [None]
  - Hypotension [None]
  - Hypoxia [None]
  - Pulse absent [None]
  - Ventricular fibrillation [None]
  - Ventricular tachycardia [None]
  - Left ventricular dysfunction [None]
